FAERS Safety Report 7299099-7 (Version None)
Quarter: 2010Q4

REPORT INFORMATION
  Report Type: 
  Country: None (occurrence: None)
  Receive Date: 20101223
  Receipt Date: 20100726
  Transmission Date: 20110411
  Serious: Yes (Other)
  Sender: FDA-Public Use
  Company Number: 240556USA

PATIENT
  Age: 24 Year
  Sex: Female

DRUGS (2)
  1. PARAGARD T 380A [Suspect]
     Indication: CONTRACEPTION
     Dosage: I.U.
     Dates: start: 20100325, end: 20100701
  2. ADALIMUMAB [Concomitant]

REACTIONS (5)
  - ABDOMINAL PAIN [None]
  - DEVICE DISLOCATION [None]
  - DYSMENORRHOEA [None]
  - NAUSEA [None]
  - VOMITING [None]
